FAERS Safety Report 6728309-7 (Version None)
Quarter: 2010Q2

REPORT INFORMATION
  Report Type: 
  Country: None (occurrence: None)
  Receive Date: 20100517
  Receipt Date: 20100430
  Transmission Date: 20101027
  Serious: Yes (Other)
  Sender: FDA-Public Use
  Company Number: A0859432A

PATIENT
  Sex: Female

DRUGS (2)
  1. NICOTINE [Suspect]
     Indication: SMOKING CESSATION THERAPY
     Route: 055
  2. NICOTINE POLACRILEX [Suspect]
     Indication: SMOKING CESSATION THERAPY

REACTIONS (2)
  - COLD SWEAT [None]
  - PNEUMONIA [None]
